FAERS Safety Report 7281634 (Version 5)
Quarter: 2013Q4

REPORT INFORMATION
  Report Type: Spontaneous
  Country: US (occurrence: US)
  Receive Date: 20100217
  Receipt Date: 20131002
  Transmission Date: 20140711
  Serious: Yes (Hospitalization, Other)
  Sender: FDA-Public Use
  Company Number: US-ROCHE-649889

PATIENT
  Age: 15 Year
  Sex: Male
  Weight: 77.1 kg

DRUGS (2)
  1. ACCUTANE [Suspect]
     Indication: ACNE
     Route: 048
  2. ACCUTANE [Suspect]
     Dosage: DOSE INCREASED; 40 MG ONCE DAILY ALTERNATING WITH 80 MG ONCE DAILY EVERY OTHER DAY
     Route: 048
     Dates: start: 19971230, end: 19980131

REACTIONS (8)
  - Crohn^s disease [Unknown]
  - Inflammatory bowel disease [Unknown]
  - Abscess [Unknown]
  - Intestinal fistula [Unknown]
  - Small intestinal obstruction [Unknown]
  - Depression [Unknown]
  - Xerosis [Unknown]
  - Lip dry [Unknown]
